FAERS Safety Report 5646787-1 (Version None)
Quarter: 2008Q1

REPORT INFORMATION
  Report Type: 
  Country: None (occurrence: None)
  Receive Date: 20080228
  Receipt Date: 20080222
  Transmission Date: 20080703
  Serious: Yes (Death, Life-Threatening, Hospitalization)
  Sender: FDA-Public Use
  Company Number: CHNY2008DE00864

PATIENT
  Age: 62 Year
  Sex: Male

DRUGS (58)
  1. FENISTIL (NCH)(DIMETINDENE MALEATE) AMPOULE [Suspect]
     Indication: RASH
     Dosage: 1 DF, TID; INTRAVENOUS, 1 DF, TID, INTRAVENOUS
     Route: 042
     Dates: start: 20040806, end: 20040806
  2. FENISTIL (NCH)(DIMETINDENE MALEATE) AMPOULE [Suspect]
     Indication: RASH
     Dosage: 1 DF, TID; INTRAVENOUS, 1 DF, TID, INTRAVENOUS
     Route: 042
     Dates: start: 20040808, end: 20040808
  3. TAVEGIL (NCH)(CLEMASTINE HYDROGEN FLUMARATE) AMPOULE [Suspect]
     Indication: RASH
     Dosage: 1 DF, TID, INTRAVENOUS
     Route: 042
     Dates: start: 20040808, end: 20040808
  4. ACC LONG (NGX)(ACETYLCYSTEINE) UNKNOWN [Suspect]
     Dosage: 600 MG, QD; ORAL, ORAL
     Route: 048
     Dates: start: 20040429, end: 20040728
  5. ACC LONG (NGX)(ACETYLCYSTEINE) UNKNOWN [Suspect]
     Dosage: 600 MG, QD; ORAL, ORAL
     Route: 048
     Dates: start: 20040711, end: 20040728
  6. ACYCLOVIR [Suspect]
     Indication: ANTIVIRAL PROPHYLAXIS
     Dosage: 200 MG, TID; ORAL, 200 MG, TID, ORAL
     Route: 048
     Dates: start: 20040720, end: 20040722
  7. ACYCLOVIR [Suspect]
     Indication: ANTIVIRAL PROPHYLAXIS
     Dosage: 200 MG, TID; ORAL, 200 MG, TID, ORAL
     Route: 048
     Dates: start: 20040724, end: 20040728
  8. METOCLOPRAMIDE [Suspect]
     Indication: NAUSEA
     Dosage: 45 DRP, ORAL
     Route: 048
     Dates: start: 20040801, end: 20040801
  9. ACC (NGX)(ACETYLCYSTEINE) SOLUTION FOR INJECTION [Suspect]
     Dosage: 1 DF, TID; INTRAVENOUS
     Route: 042
     Dates: start: 20040801, end: 20040806
  10. PANTOPRAZOLE SODIUM [Suspect]
     Dosage: 40 MG, QD; ORAL, 40 MG, QD; ORAL
     Route: 048
     Dates: start: 20040724, end: 20040724
  11. PANTOPRAZOLE SODIUM [Suspect]
     Dosage: 40 MG, QD; ORAL, 40 MG, QD; ORAL
     Route: 048
     Dates: start: 20040420, end: 20040921
  12. METOPROLOL TARTRATE [Suspect]
     Indication: HYPERTENSION
     Dosage: 47.5 MG, QD; ORAL
     Route: 048
     Dates: start: 20040720, end: 20040721
  13. PREDNISOLONE [Suspect]
     Dosage: 2 X 100MG, 80MG, 60MG, INTRAVENOUS
     Route: 042
     Dates: start: 20040720, end: 20040808
  14. ATROPINE [Suspect]
     Dosage: SUBCUTANEOUS
     Route: 058
     Dates: start: 20040721, end: 20040723
  15. VANCOMYCIN [Suspect]
     Indication: INFECTION PROPHYLAXIS
     Dosage: 1G, INTRAVENOUS
     Route: 042
     Dates: start: 20040801, end: 20040801
  16. GLUCOSE(GLUCOSE) [Suspect]
     Dosage: INTRAVENOUS
     Route: 042
     Dates: start: 20040801, end: 20040801
  17. SODIUM CHLORIDE 0.9% [Suspect]
     Dosage: INTRAVENOUS, INTRAVENOUS
     Route: 042
     Dates: start: 20040801, end: 20040801
  18. SODIUM CHLORIDE 0.9% [Suspect]
     Dosage: INTRAVENOUS, INTRAVENOUS
     Route: 042
     Dates: start: 20040805, end: 20040808
  19. URSO FALK [Suspect]
     Dosage: ORAL
     Route: 048
     Dates: start: 20040717, end: 20040718
  20. CIPROFLOXACIN HCL [Suspect]
     Indication: INFECTION PROPHYLAXIS
     Dosage: 500 MG, ONCE/SINGLE; ORAL, 500 MG BID, ORAL, 500 MG BID, ORAL
     Route: 048
     Dates: start: 20040717, end: 20040717
  21. CIPROFLOXACIN HCL [Suspect]
     Indication: INFECTION PROPHYLAXIS
     Dosage: 500 MG, ONCE/SINGLE; ORAL, 500 MG BID, ORAL, 500 MG BID, ORAL
     Route: 048
     Dates: start: 20040728, end: 20040801
  22. CIPROFLOXACIN HCL [Suspect]
     Indication: INFECTION PROPHYLAXIS
     Dosage: 500 MG, ONCE/SINGLE; ORAL, 500 MG BID, ORAL, 500 MG BID, ORAL
     Route: 048
     Dates: start: 20040804, end: 20040804
  23. RAMIPRIL [Suspect]
     Indication: HYPERTENSION
     Dosage: 0.5 DF, QD; ORAL, 10 MG, QD; ORAL
     Route: 048
     Dates: start: 20040717, end: 20040717
  24. RAMIPRIL [Suspect]
     Indication: HYPERTENSION
     Dosage: 0.5 DF, QD; ORAL, 10 MG, QD; ORAL
     Route: 048
     Dates: start: 20040720, end: 20040808
  25. NEXIUM [Suspect]
     Dosage: 20 MG, QD; ORAL, 20 MG, BID, ORAL
     Route: 048
     Dates: start: 20040717, end: 20040717
  26. NEXIUM [Suspect]
     Dosage: 20 MG, QD; ORAL, 20 MG, BID, ORAL
     Route: 048
     Dates: start: 20040720, end: 20040808
  27. PROGRAF [Suspect]
     Dosage: 2-0-2,3-0-3.8-0 0, ORAL
     Route: 048
     Dates: start: 20040717, end: 20040808
  28. MERONEM(MEROPENEM) [Suspect]
     Dosage: 3 X 1G, INTRAVENOUS, 3 X 1G, INTRAVENOUS
     Route: 042
     Dates: start: 20040718, end: 20040722
  29. MERONEM(MEROPENEM) [Suspect]
     Dosage: 3 X 1G, INTRAVENOUS, 3 X 1G, INTRAVENOUS
     Route: 042
     Dates: start: 20040803, end: 20040806
  30. FRAGMIN [Suspect]
     Indication: THROMBOSIS PROPHYLAXIS
     Dosage: 2500 IU, SUBCUTANEOUS
     Route: 058
     Dates: start: 20040720, end: 20040808
  31. CICLOPIROX(CICLOPIROX) [Suspect]
     Dosage: TOPICAL
     Route: 061
     Dates: start: 20040720, end: 20040808
  32. PSORCUTAN(CALCIPOTRIOL) [Suspect]
     Dosage: BID, TOPICAL
     Route: 061
     Dates: start: 20040720, end: 20040808
  33. PSORCUTAN(CALCIPOTRIOL) [Suspect]
     Dosage: BID;TOPICAL
     Dates: start: 20040720, end: 20040808
  34. PRAMIPEXOLE DIHYDROCHLORIDE [Suspect]
     Indication: EXTRAPYRAMIDAL DISORDER
     Dosage: 1-2, ORAL
     Route: 048
     Dates: start: 20040720, end: 20040808
  35. SAB SIMPLEX(DIMETICONE) [Suspect]
     Indication: STOMACH DISCOMFORT
     Dosage: 1 DF, ONCE/SINGLE; ORAL
     Route: 048
     Dates: start: 20040723, end: 20040723
  36. KALINOR-BRAUSETABLETTEN(POTASSIUM CARBONATE, POTASSIUM CITRATE) [Suspect]
     Indication: HYPOKALAEMIA
     Dosage: 1 DF, QD; ORAL
     Route: 048
     Dates: start: 20040723, end: 20040724
  37. SOLU-DECORTIN-H(PREDNISOLONE SODIUM SUCCINATE) [Suspect]
     Dosage: INTRAVENOUS
     Route: 042
     Dates: start: 20040723, end: 20040726
  38. NOCTAMID(LORMETAZEPAM) [Suspect]
     Indication: SLEEP DISORDER
     Dosage: 1MG, ORAL, 1 MG; ORAL
     Route: 048
     Dates: start: 20040723, end: 20040723
  39. NOCTAMID(LORMETAZEPAM) [Suspect]
     Indication: SLEEP DISORDER
     Dosage: 1MG, ORAL, 1 MG; ORAL
     Route: 048
     Dates: start: 20040725, end: 20040726
  40. PLACEBO(NO INGREDIENTS/SUBSTANCES) [Suspect]
     Dosage: 1 DF, ORAL
     Route: 048
     Dates: start: 20040728, end: 20040728
  41. TRAMADOL HYDROHLORIDE [Suspect]
     Indication: PAIN
     Dosage: 2X20, 4X20, 2X20; ORAL, 2X20, 4X20, 2X20; ORAL
     Route: 048
     Dates: start: 20040730, end: 20040801
  42. TRAMADOL HYDROHLORIDE [Suspect]
     Indication: PAIN
     Dosage: 2X20, 4X20, 2X20; ORAL, 2X20, 4X20, 2X20; ORAL
     Route: 048
     Dates: start: 20040728
  43. DIFLUCAN [Suspect]
     Indication: MYCOSIS FUNGOIDES
     Dosage: 2-0-0. 1-0-0, ORAL
     Route: 048
     Dates: start: 20040728, end: 20040804
  44. PIPERACILLIN SODIUM [Suspect]
     Indication: INFECTION PROPHYLAXIS
     Dosage: 0-0, 1 , INTRAVENOUS
     Route: 042
     Dates: start: 20040730, end: 20040805
  45. COMBACTAM(SULBACTAM SODIUM) [Suspect]
     Indication: INFECTION PROPHYLAXIS
     Dosage: 0-0, 1, INTRAVENOUS
     Route: 042
     Dates: start: 20040730, end: 20040806
  46. KONAKION [Suspect]
     Dosage: 20 DRP,BID; ORAL
     Route: 048
     Dates: start: 20040802, end: 20040805
  47. ACETAMINOPHEN [Suspect]
     Indication: PAIN
     Dosage: 500 MG, RECTAL, 500 MG, RECTAL,
     Route: 054
     Dates: start: 20040802, end: 20040802
  48. ACETAMINOPHEN [Suspect]
     Indication: PAIN
     Dosage: 500 MG, RECTAL, 500 MG, RECTAL,
     Route: 054
     Dates: start: 20040804, end: 20040807
  49. KANAVIT(PHYTOMENADIONE) [Suspect]
     Dosage: ORAL
     Route: 048
     Dates: start: 20040802, end: 20040808
  50. LASIX [Suspect]
     Indication: OEDEMA
     Dosage: 40MG, ONCE/SINGLE, ORAL
     Route: 048
     Dates: start: 20040803, end: 20040803
  51. FORTRAL(PENTAZOCINE) [Suspect]
     Indication: DRUG USE FOR UNKNOWN INDICATION
     Dosage: 15MG, INTRAVENOUS
     Route: 042
     Dates: start: 20040804, end: 20040804
  52. MIDAZOLAM HYDROCHLORIDE [Suspect]
     Indication: DRUG USE FOR UNKNOWN INDICATION
     Dosage: 3 MG, INTRAVENOUS
     Route: 042
     Dates: start: 20040804, end: 20040804
  53. TUTOFUSIN(AMINO ACIDS NOS, ELECTROLYTES NOS, VITAMINS NOS) [Suspect]
     Indication: DRUG USE FOR UNKNOWN INDICATION
     Dosage: 1000 500 ML; INTRAVENOUS
     Route: 042
     Dates: start: 20040805, end: 20040808
  54. ACETAMINOPHEN [Suspect]
     Indication: PAIN
     Dosage: 500 MG,QD; ORAL, 500 MG, BID, ORAL
     Route: 048
     Dates: start: 20040806, end: 20040806
  55. ACETAMINOPHEN [Suspect]
     Indication: PAIN
     Dosage: 500 MG,QD; ORAL, 500 MG, BID, ORAL
     Route: 048
     Dates: start: 20040808, end: 20040808
  56. CIPROFLOXACIN HCL [Suspect]
     Indication: INFECTION PROPHYLAXIS
     Dosage: 400 MG,BID, INTRAVENOUS
     Route: 042
     Dates: start: 20040806, end: 20040808
  57. MAXIPIME [Suspect]
     Indication: INFECTION PROPHYLAXIS
     Dosage: 2 G, BID, INTRAVENOUS
     Route: 042
     Dates: start: 20040806, end: 20040806
  58. CALCIUM CARBONATE(CALCIUM CARBONATE) [Suspect]
     Indication: MINERAL SUPPLEMENTATION
     Dosage: 1 G, ORAL
     Route: 048
     Dates: start: 20040807, end: 20040808

REACTIONS (2)
  - STEVENS-JOHNSON SYNDROME [None]
  - TOXIC EPIDERMAL NECROLYSIS [None]
